FAERS Safety Report 10723205 (Version 1)
Quarter: 2015Q1

REPORT INFORMATION
  Report Type: Spontaneous
  Country: US (occurrence: US)
  Receive Date: 20150120
  Receipt Date: 20150120
  Transmission Date: 20150721
  Serious: No
  Sender: FDA-Public Use
  Company Number: US-PFIZER INC-2015019005

PATIENT
  Age: 63 Year
  Sex: Female
  Weight: 66 kg

DRUGS (5)
  1. ARMOUR THYROID [Concomitant]
     Active Substance: THYROID, PORCINE\THYROID, UNSPECIFIED
     Indication: THYROID DISORDER
     Dosage: 60 MG, 1X/DAY
     Route: 048
  2. GABAPENTIN. [Suspect]
     Active Substance: GABAPENTIN
     Dosage: 100 MG, 1X/DAY
     Route: 048
  3. GABAPENTIN. [Suspect]
     Active Substance: GABAPENTIN
     Indication: FIBROMYALGIA
     Dosage: UNK
     Route: 048
  4. GABAPENTIN. [Suspect]
     Active Substance: GABAPENTIN
     Dosage: 100 MG, 2X/DAY (100 MG IN THE MORNING AND 100 MG IN THE EVENING)
     Route: 048
  5. PROGESTERONE. [Concomitant]
     Active Substance: PROGESTERONE
     Indication: HOT FLUSH
     Dosage: 100 MG, 1X/DAY
     Route: 048

REACTIONS (6)
  - Product use issue [Unknown]
  - Pain [Recovering/Resolving]
  - Drug intolerance [Recovering/Resolving]
  - Diarrhoea [Recovered/Resolved]
  - Malaise [Recovering/Resolving]
  - Drug ineffective [Recovering/Resolving]

NARRATIVE: CASE EVENT DATE: 2014
